FAERS Safety Report 9019474 (Version 2)
Quarter: 2013Q1

REPORT INFORMATION
  Report Type: Spontaneous
  Country: US (occurrence: US)
  Receive Date: 20130118
  Receipt Date: 20130201
  Transmission Date: 20140127
  Serious: Yes (Hospitalization)
  Sender: FDA-Public Use
  Company Number: US-GENZYME-POMP-1002728

PATIENT
  Age: 64 None
  Sex: Male
  Weight: 53.06 kg

DRUGS (1)
  1. LUMIZYME [Suspect]
     Indication: GLYCOGEN STORAGE DISEASE TYPE II
     Dosage: 1100 MG, Q2W
     Route: 042
     Dates: start: 20121130

REACTIONS (5)
  - Influenza [Unknown]
  - Asthenia [Unknown]
  - Mobility decreased [Unknown]
  - Weight decreased [Unknown]
  - Fall [Unknown]
